FAERS Safety Report 18019740 (Version 1)
Quarter: 2020Q3

REPORT INFORMATION
  Report Type: Spontaneous
  Country: FR (occurrence: FR)
  Receive Date: 20200714
  Receipt Date: 20200714
  Transmission Date: 20201103
  Serious: Yes (Other)
  Sender: FDA-Public Use
  Company Number: FR-MYLANLABS-2020M1064552

PATIENT
  Age: 53 Year
  Sex: Male
  Weight: 95 kg

DRUGS (5)
  1. VISIPAQUE [Suspect]
     Active Substance: IODIXANOL
     Indication: ANGIOCARDIOGRAM
     Dosage: 100 MILLILITER, TOTAL (STRENGTH: 320 MG DL/ML)
     Route: 042
     Dates: start: 20190227, end: 20190227
  2. MIDAZOLAM MYLAN [Suspect]
     Active Substance: MIDAZOLAM HYDROCHLORIDE
     Indication: ANGIOCARDIOGRAM
     Dosage: 2 MILLIGRAM, TOTAL
     Route: 042
     Dates: start: 20190227, end: 20190227
  3. LIDOCAINE AGUETTANT [Suspect]
     Active Substance: LIDOCAINE
     Indication: ANGIOCARDIOGRAM
     Dosage: UNK
     Route: 058
     Dates: start: 20190227, end: 20190227
  4. HEPARINE SODIQUE [Suspect]
     Active Substance: HEPARIN SODIUM
     Indication: ANGIOCARDIOGRAM
     Dosage: 4000 INTERNATIONAL UNIT, TOTAL
     Route: 042
     Dates: start: 20190227, end: 20190227
  5. ISOPTINE [Suspect]
     Active Substance: VERAPAMIL HYDROCHLORIDE
     Indication: ANGIOCARDIOGRAM
     Dosage: 2.5 MILLIGRAM, QD
     Route: 042
     Dates: start: 20190227, end: 20190227

REACTIONS (2)
  - Face oedema [Recovered/Resolved]
  - Dermatitis exfoliative generalised [Recovered/Resolved]

NARRATIVE: CASE EVENT DATE: 20190228
